FAERS Safety Report 5959523-6 (Version None)
Quarter: 2008Q4

REPORT INFORMATION
  Report Type: 
  Country: None (occurrence: None)
  Receive Date: 20081118
  Receipt Date: 20081103
  Transmission Date: 20090506
  Serious: Yes (Other)
  Sender: FDA-Public Use
  Company Number: 2008S1019753

PATIENT
  Sex: Female

DRUGS (1)
  1. DOXYCYCLINE [Suspect]
     Indication: PNEUMONIA
     Dosage: 100 MG; ONCE;

REACTIONS (1)
  - HEPATIC ENZYME INCREASED [None]
